FAERS Safety Report 5135067-9 (Version None)
Quarter: 2006Q4

REPORT INFORMATION
  Report Type: 
  Country: None (occurrence: None)
  Receive Date: 20060831
  Receipt Date: 20060413
  Transmission Date: 20070319
  Serious: Yes (Hospitalization)
  Sender: FDA-Public Use
  Company Number: 251493

PATIENT
  Age: 45 Year
  Sex: Male

DRUGS (7)
  1. NOVOLIN R [Suspect]
     Indication: DIABETES MELLITUS NON-INSULIN-DEPENDENT
     Dosage: 10-20 UNITS AS PER SLIDING SCALE, INTRAVENOUS
     Route: 042
     Dates: start: 20060306
  2. SUSTIVA [Concomitant]
  3. ABACAVIR SULFATE (ABACAVIR SULFATE) [Concomitant]
  4. PROZAC [Concomitant]
  5. ZANTAC [Concomitant]
  6. LISINOPRIL [Concomitant]
  7. PREDNISONE TAB [Concomitant]

REACTIONS (1)
  - BLOOD GLUCOSE FLUCTUATION [None]
